FAERS Safety Report 5757095-2 (Version None)
Quarter: 2008Q2

REPORT INFORMATION
  Report Type: 
  Country: None (occurrence: None)
  Receive Date: 20080603
  Receipt Date: 20080527
  Transmission Date: 20081010
  Serious: Yes (Life-Threatening, Hospitalization)
  Sender: FDA-Public Use
  Company Number: B0523260A

PATIENT
  Age: 23 Year
  Sex: Male

DRUGS (1)
  1. ZELITREX [Suspect]
     Route: 048
     Dates: start: 20080501, end: 20080520

REACTIONS (1)
  - STEVENS-JOHNSON SYNDROME [None]
